FAERS Safety Report 5261685-3 (Version None)
Quarter: 2007Q1

REPORT INFORMATION
  Report Type: 
  Country: None (occurrence: None)
  Receive Date: 20070308
  Receipt Date: 20070226
  Transmission Date: 20070707
  Serious: Yes (Hospitalization)
  Sender: FDA-Public Use
  Company Number: 237239

PATIENT
  Sex: Female

DRUGS (6)
  1. LUCENTIS [Suspect]
     Indication: MACULAR DEGENERATION
     Dates: start: 20070208
  2. ZOLOFT [Concomitant]
  3. WELLBUTRIN [Concomitant]
  4. DIOVAN [Concomitant]
  5. TOPROL-XL [Concomitant]
  6. LIPITOR [Concomitant]

REACTIONS (3)
  - ARTHRITIS [None]
  - CONDITION AGGRAVATED [None]
  - UPPER RESPIRATORY TRACT INFECTION [None]
